FAERS Safety Report 16958001 (Version 1)
Quarter: 2019Q4

REPORT INFORMATION
  Report Type: Spontaneous
  Country: CA (occurrence: CA)
  Receive Date: 20191024
  Receipt Date: 20191024
  Transmission Date: 20200122
  Serious: Yes (Hospitalization, Other)
  Sender: FDA-Public Use
  Company Number: CA-PFIZER INC-2019458759

PATIENT
  Age: 76 Year
  Sex: Female

DRUGS (13)
  1. VASOTEC [Suspect]
     Active Substance: ENALAPRIL MALEATE
     Indication: CARDIAC FAILURE CHRONIC
     Dosage: 5 MG, 2X/DAY
     Route: 048
  2. CLODRONATE DISODIUM [Concomitant]
     Active Substance: CLODRONATE DISODIUM
     Indication: MALIGNANT PLEURAL EFFUSION
     Dosage: UNK
  3. EPLERENONE. [Suspect]
     Active Substance: EPLERENONE
     Dosage: 25 MG, 1X/DAY
  4. ANASTROZOLE. [Concomitant]
     Active Substance: ANASTROZOLE
     Indication: MALIGNANT PLEURAL EFFUSION
     Dosage: UNK
  5. FUROSEMIDE. [Suspect]
     Active Substance: FUROSEMIDE
     Indication: CARDIAC FAILURE CHRONIC
     Dosage: 20 MG, 1X/DAY
  6. FUROSEMIDE. [Suspect]
     Active Substance: FUROSEMIDE
     Dosage: 20 MG, UNK
  7. SPIRONOLACTONE. [Suspect]
     Active Substance: SPIRONOLACTONE
     Indication: CARDIAC FAILURE CHRONIC
     Dosage: 25 MG, 1X/DAY
  8. CARVEDILOL. [Suspect]
     Active Substance: CARVEDILOL
     Dosage: 25 MG, 2X/DAY
     Route: 065
  9. EPLERENONE. [Suspect]
     Active Substance: EPLERENONE
     Dosage: 25 MG, UNK
  10. CARVEDILOL. [Suspect]
     Active Substance: CARVEDILOL
     Indication: CARDIAC FAILURE CHRONIC
     Dosage: 12.5 MG, 2X/DAY
  11. ENALAPRIL MALEATE. [Suspect]
     Active Substance: ENALAPRIL MALEATE
     Dosage: 5 MG, 2X/DAY
     Route: 065
  12. ENALAPRIL MALEATE. [Suspect]
     Active Substance: ENALAPRIL MALEATE
     Dosage: 5 MG, UNK
     Route: 065
  13. CARVEDILOL. [Suspect]
     Active Substance: CARVEDILOL
     Dosage: 25 MG, 2X/DAY
     Route: 065

REACTIONS (9)
  - Atrial enlargement [Unknown]
  - Cardiac failure [Unknown]
  - Hypovolaemia [Unknown]
  - N-terminal prohormone brain natriuretic peptide increased [Unknown]
  - Pulmonary arterial pressure increased [Unknown]
  - Drug ineffective [Unknown]
  - Hypotension [Unknown]
  - Disease progression [Unknown]
  - Tricuspid valve incompetence [Unknown]
